FAERS Safety Report 10324260 (Version 2)
Quarter: 2015Q1

REPORT INFORMATION
  Report Type: Other
  Country: US (occurrence: US)
  Receive Date: 20140720
  Receipt Date: 20150213
  Transmission Date: 20150720
  Serious: Yes (Hospitalization)
  Sender: FDA-Public Use
  Company Number: US-GSKPPD-2014GSK040669

PATIENT
  Age: 48 Year
  Sex: Male

DRUGS (6)
  1. COREG [Concomitant]
     Active Substance: CARVEDILOL
  2. LANOXIN [Concomitant]
     Active Substance: DIGOXIN
  3. CAPTOPRIL. [Concomitant]
     Active Substance: CAPTOPRIL
  4. COUMADINE [Concomitant]
     Active Substance: WARFARIN SODIUM
  5. TIKOSYN [Concomitant]
     Active Substance: DOFETILIDE
  6. AVANDIA [Suspect]
     Active Substance: ROSIGLITAZONE MALEATE
     Indication: DIABETES MELLITUS
     Dosage: AVANDIA WAS NOT LISTED AMONG THE PATIENTS RECORDS REVIEWED.
     Route: 048

REACTIONS (2)
  - Electrocardiogram abnormal [Unknown]
  - Arrhythmia [Recovered/Resolved]

NARRATIVE: CASE EVENT DATE: 20081203
